FAERS Safety Report 8308919-6 (Version None)
Quarter: 2012Q2

REPORT INFORMATION
  Report Type: 
  Country: None (occurrence: None)
  Receive Date: 20120424
  Receipt Date: 20120417
  Transmission Date: 20120825
  Serious: Yes (Other)
  Sender: FDA-Public Use
  Company Number: CHPA2012US009111

PATIENT
  Age: 81 Year
  Sex: Male

DRUGS (4)
  1. IBUPROFEN [Concomitant]
     Indication: BACK PAIN
     Dosage: UNK
     Dates: start: 20110315
  2. ASPIRIN [Concomitant]
     Dosage: 325 MG, UNK
  3. PREVACID 24 HR [Suspect]
     Indication: OESOPHAGEAL DISORDER
     Dosage: 30 MG, QD
     Route: 048
  4. TRAMADOL HCL [Concomitant]
     Indication: BACK PAIN

REACTIONS (4)
  - OVERDOSE [None]
  - INCORRECT DRUG ADMINISTRATION DURATION [None]
  - INTERVERTEBRAL DISC DISORDER [None]
  - OFF LABEL USE [None]
